FAERS Safety Report 17945358 (Version 4)
Quarter: 2020Q3

REPORT INFORMATION
  Report Type: Report from Study
  Country: None (occurrence: US)
  Receive Date: 20200626
  Receipt Date: 20200904
  Transmission Date: 20201103
  Serious: Yes (Other)
  Sender: FDA-Public Use
  Company Number: US-ABBVIE-20K-163-3457903-00

PATIENT
  Age: 39 Year
  Sex: Female
  Weight: 69.01 kg

DRUGS (3)
  1. HUMIRA [Suspect]
     Active Substance: ADALIMUMAB
     Indication: PSORIATIC ARTHROPATHY
     Dosage: CITRATE FREE
     Route: 058
     Dates: start: 2020
  2. HUMIRA [Suspect]
     Active Substance: ADALIMUMAB
     Indication: PSORIASIS
     Dosage: CITRATE FREE; STARTER DOSE
     Route: 058
     Dates: start: 20200619, end: 20200619
  3. HUMIRA [Suspect]
     Active Substance: ADALIMUMAB
     Route: 058

REACTIONS (19)
  - Loss of consciousness [Recovered/Resolved]
  - Vomiting [Recovered/Resolved]
  - Injection site pruritus [Recovered/Resolved]
  - Ear pruritus [Unknown]
  - Tinnitus [Recovered/Resolved]
  - Road traffic accident [Unknown]
  - Hunger [Unknown]
  - Cold sweat [Recovered/Resolved]
  - Hypoaesthesia [Unknown]
  - Paraesthesia [Recovered/Resolved]
  - Body temperature decreased [Unknown]
  - Pruritus [Unknown]
  - Injection site erythema [Unknown]
  - Injection site pruritus [Recovered/Resolved]
  - Hyperhidrosis [Not Recovered/Not Resolved]
  - Injection site pruritus [Unknown]
  - Injection site erythema [Recovered/Resolved]
  - Fatigue [Not Recovered/Not Resolved]
  - Arthralgia [Unknown]

NARRATIVE: CASE EVENT DATE: 2020
